FAERS Safety Report 7363402-X (Version None)
Quarter: 2011Q1

REPORT INFORMATION
  Report Type: 
  Country: None (occurrence: None)
  Receive Date: 20110321
  Receipt Date: 20110308
  Transmission Date: 20110831
  Serious: Yes (Other)
  Sender: FDA-Public Use
  Company Number: PHFR2011GB01814

PATIENT
  Sex: Male

DRUGS (8)
  1. QUETIAPINE [Concomitant]
  2. AMISULPRIDE [Suspect]
     Dosage: 200 MG, QD
     Route: 065
  3. THIORIDAZINE [Concomitant]
  4. PIPORTIL DEPOT [Concomitant]
  5. CLOPIXOL DEPOT [Concomitant]
  6. CLOZARIL [Suspect]
     Dosage: UNK
     Route: 065
     Dates: start: 20050101, end: 20101001
  7. TRIFLUOPERAZINE HCL [Concomitant]
  8. HALOPERIDOL [Concomitant]

REACTIONS (9)
  - BLOOD UREA INCREASED [None]
  - RENAL FAILURE [None]
  - BLADDER OBSTRUCTION [None]
  - MENTAL IMPAIRMENT [None]
  - BLOOD CREATININE INCREASED [None]
  - RENAL IMPAIRMENT [None]
  - HYPERTENSION [None]
  - PSYCHOTIC DISORDER [None]
  - HAEMOGLOBIN DECREASED [None]
